FAERS Safety Report 8474222-7 (Version None)
Quarter: 2012Q2

REPORT INFORMATION
  Report Type: 
  Country: None (occurrence: None)
  Receive Date: 20120628
  Receipt Date: 20120621
  Transmission Date: 20120825
  Serious: Yes (Hospitalization, Other)
  Sender: FDA-Public Use
  Company Number: AU-B.I. PHARMACEUTICALS,INC./RIDGEFIELD-2012-AU-00865AU

PATIENT
  Sex: Male
  Weight: 100 kg

DRUGS (6)
  1. PRADAXA [Suspect]
     Indication: ATRIAL FIBRILLATION
     Dosage: 220 MG
     Dates: start: 20110719, end: 20110823
  2. FELODIPINE [Concomitant]
  3. VITAMIN B-12 [Concomitant]
     Route: 051
  4. IRBESARTAN + HYDROCHLOROTHIAZIDE [Concomitant]
  5. CRESTOR [Concomitant]
  6. ACETAMINOPHEN [Concomitant]

REACTIONS (2)
  - RECTAL CANCER [None]
  - RECTAL HAEMORRHAGE [None]
